FAERS Safety Report 6640027-2 (Version None)
Quarter: 2010Q1

REPORT INFORMATION
  Report Type: 
  Country: None (occurrence: None)
  Receive Date: 20100315
  Receipt Date: 20100302
  Transmission Date: 20100710
  Serious: No
  Sender: FDA-Public Use
  Company Number: 2009SP039602

PATIENT
  Age: 42 Year
  Sex: Female

DRUGS (2)
  1. IMPLANON [Suspect]
     Indication: DRUG USE FOR UNKNOWN INDICATION
     Dosage: 1 DF;SC
     Route: 058
     Dates: start: 20090201
  2. PROGEST [Concomitant]

REACTIONS (1)
  - PREGNANCY WITH IMPLANT CONTRACEPTIVE [None]
